FAERS Safety Report 23310539 (Version 1)
Quarter: 2023Q4

REPORT INFORMATION
  Report Type: Spontaneous
  Country: US (occurrence: US)
  Receive Date: 20231218
  Receipt Date: 20231218
  Transmission Date: 20240110
  Serious: No
  Sender: FDA-Public Use
  Company Number: US-PROGENICS PHARMACEUTICALS, INC.-LMI-2023-01279

PATIENT
  Sex: Male

DRUGS (3)
  1. PYLARIFY [Suspect]
     Active Substance: PIFLUFOLASTAT F-18
     Indication: Scan
     Dosage: UNK
     Route: 042
     Dates: start: 20230922, end: 20230922
  2. ATORVASTATIN [Concomitant]
     Active Substance: ATORVASTATIN
     Indication: Product used for unknown indication
     Dosage: UNK
  3. OMEPRAZOLE [Concomitant]
     Active Substance: OMEPRAZOLE
     Indication: Product used for unknown indication
     Dosage: UNK

REACTIONS (1)
  - Radioisotope scan abnormal [Unknown]

NARRATIVE: CASE EVENT DATE: 20230922
